FAERS Safety Report 24914060 (Version 1)
Quarter: 2025Q1

REPORT INFORMATION
  Report Type: Spontaneous
  Country: US (occurrence: US)
  Receive Date: 20250202
  Receipt Date: 20250202
  Transmission Date: 20250408
  Serious: No
  Sender: MERCK
  Company Number: US-009507513-2501USA010083

PATIENT
  Sex: Male
  Weight: 163 kg

DRUGS (7)
  1. KEYTRUDA [Suspect]
     Active Substance: PEMBROLIZUMAB
     Indication: Renal cancer
  2. LENVATINIB MESYLATE [Suspect]
     Active Substance: LENVATINIB MESYLATE
     Indication: Renal cancer
     Dosage: 20 MILLIGRAM, QD
     Dates: start: 20240626
  3. LEVOTHYROXINE SODIUM [Concomitant]
     Active Substance: LEVOTHYROXINE SODIUM
  4. NIFEDIPINE [Concomitant]
     Active Substance: NIFEDIPINE
  5. DOXAZOSIN MESYLATE [Concomitant]
     Active Substance: DOXAZOSIN MESYLATE
  6. HYDRALAZINE HYDROCHLORIDE [Concomitant]
     Active Substance: HYDRALAZINE HYDROCHLORIDE
  7. ALLOPURINOL [Concomitant]
     Active Substance: ALLOPURINOL

REACTIONS (6)
  - Sinusitis [Unknown]
  - Epistaxis [Unknown]
  - Fatigue [Unknown]
  - Asthenia [Unknown]
  - Taste disorder [Unknown]
  - Weight decreased [Unknown]
